FAERS Safety Report 12536967 (Version 1)
Quarter: 2016Q3

REPORT INFORMATION
  Report Type: Spontaneous
  Country: AT (occurrence: AT)
  Receive Date: 20160707
  Receipt Date: 20160707
  Transmission Date: 20161109
  Serious: Yes (Death, Hospitalization, Other)
  Sender: FDA-Public Use
  Company Number: AT-ELI_LILLY_AND_COMPANY-AT201602000614

PATIENT
  Age: 16 Year
  Sex: Female

DRUGS (4)
  1. TEMESTA                            /00273201/ [Concomitant]
     Active Substance: LORAZEPAM
     Dosage: 6.5 MG, UNK
     Route: 048
     Dates: start: 20151012, end: 20151014
  2. ABILIFY [Concomitant]
     Active Substance: ARIPIPRAZOLE
     Indication: PRODUCT USED FOR UNKNOWN INDICATION
     Dosage: 10 MG, QD
     Route: 048
     Dates: end: 20151014
  3. TRUXAL                             /00012101/ [Concomitant]
     Active Substance: CHLORPROTHIXENE
     Dosage: 50 MG, UNK
     Route: 048
     Dates: start: 20150414, end: 20151014
  4. FLUOXETINE HYDROCHLORIDE. [Suspect]
     Active Substance: FLUOXETINE HYDROCHLORIDE
     Indication: PERSONALITY DISORDER
     Dosage: 40 MG, QD
     Route: 048
     Dates: end: 20151014

REACTIONS (5)
  - Completed suicide [Fatal]
  - Suicide attempt [Unknown]
  - Depression [Unknown]
  - Suicidal ideation [Unknown]
  - Off label use [Unknown]
